FAERS Safety Report 9033647 (Version 1)
Quarter: 2013Q1

REPORT INFORMATION
  Report Type: Spontaneous
  Country: CA (occurrence: CA)
  Receive Date: 20130128
  Receipt Date: 20130128
  Transmission Date: 20140127
  Serious: Yes (Hospitalization)
  Sender: FDA-Public Use
  Company Number: CA-AMGEN-CANSP2012080684

PATIENT
  Age: 72 Year
  Sex: Female
  Weight: 48.18 kg

DRUGS (1)
  1. PROLIA [Suspect]
     Indication: OSTEOPOROSIS POSTMENOPAUSAL
     Dosage: UNK
     Dates: start: 20120614, end: 20120614

REACTIONS (2)
  - Hepatic cancer [Unknown]
  - Malignant neoplasm progression [Unknown]
